FAERS Safety Report 7571129-4 (Version None)
Quarter: 2011Q2

REPORT INFORMATION
  Report Type: 
  Country: None (occurrence: None)
  Receive Date: 20110624
  Receipt Date: 20110615
  Transmission Date: 20111010
  Serious: Yes (Other)
  Sender: FDA-Public Use
  Company Number: FR-ACTELION-A-CH2011-50517

PATIENT
  Sex: Female

DRUGS (1)
  1. TRACLEER [Suspect]
     Indication: PULMONARY ARTERIAL HYPERTENSION
     Dosage: UNK
     Route: 048
     Dates: start: 20051001, end: 20100101

REACTIONS (5)
  - CARDIAC FAILURE [None]
  - PREGNANCY [None]
  - RESUSCITATION [None]
  - CARDIAC ARREST [None]
  - NORMAL NEWBORN [None]
